FAERS Safety Report 23495611 (Version 2)
Quarter: 2024Q1

REPORT INFORMATION
  Report Type: Spontaneous
  Country: SK (occurrence: SK)
  Receive Date: 20240207
  Receipt Date: 20240221
  Transmission Date: 20240409
  Serious: Yes (Other)
  Sender: FDA-Public Use
  Company Number: SK-AMGEN-SVKSP2024019655

PATIENT
  Age: 23 Year
  Sex: Female

DRUGS (6)
  1. TISAGENLECLEUCEL [Suspect]
     Active Substance: TISAGENLECLEUCEL
     Indication: Product used for unknown indication
     Dosage: UNK
     Route: 065
     Dates: start: 20220526
  2. BLINATUMOMAB [Suspect]
     Active Substance: BLINATUMOMAB
     Indication: B precursor type acute leukaemia
     Dosage: UNK, (1 CYCLE) CONTINUOUS INFUSION VIA PERIPHERALLY INSERTED CENTRAL CATHETER (PICC) FOR 28 DAYS
     Route: 042
     Dates: start: 20210716, end: 20210813
  3. INOTUZUMAB OZOGAMICIN [Suspect]
     Active Substance: INOTUZUMAB OZOGAMICIN
     Indication: Product used for unknown indication
     Dosage: UNK
     Route: 065
     Dates: start: 20220426
  4. INOTUZUMAB OZOGAMICIN [Suspect]
     Active Substance: INOTUZUMAB OZOGAMICIN
     Dosage: 1 CYCLICAL
     Route: 065
     Dates: start: 20210827, end: 2021
  5. INOTUZUMAB OZOGAMICIN [Suspect]
     Active Substance: INOTUZUMAB OZOGAMICIN
     Dosage: UNK, DAY 15 CYCLE 2 INCREASE DOSE BY 1 MG
     Route: 065
     Dates: start: 20211001
  6. INOTUZUMAB OZOGAMICIN [Suspect]
     Active Substance: INOTUZUMAB OZOGAMICIN
     Dosage: 2 CYCLICAL
     Route: 065
     Dates: start: 20210917

REACTIONS (4)
  - Sepsis [Unknown]
  - Cytokine release syndrome [Unknown]
  - Leukaemic infiltration extramedullary [Unknown]
  - Immune effector cell-associated neurotoxicity syndrome [Unknown]

NARRATIVE: CASE EVENT DATE: 20210717
